FAERS Safety Report 14334003 (Version 2)
Quarter: 2018Q1

REPORT INFORMATION
  Report Type: Spontaneous
  Country: CA (occurrence: CA)
  Receive Date: 20171228
  Receipt Date: 20180222
  Transmission Date: 20180509
  Serious: Yes (Other)
  Sender: FDA-Public Use
  Company Number: PHHY2017CA191379

PATIENT
  Sex: Female

DRUGS (6)
  1. IBRANCE [Suspect]
     Active Substance: PALBOCICLIB
     Indication: BREAST CANCER FEMALE
     Dosage: 125 MG, QD (DAILY FOR 21 DAYS AND THEN 7 DAYS OFF)
     Route: 048
     Dates: start: 20170107
  2. VITAMIN D [Concomitant]
     Active Substance: CHOLECALCIFEROL
     Indication: PRODUCT USED FOR UNKNOWN INDICATION
     Route: 065
  3. LETROZOLE. [Suspect]
     Active Substance: LETROZOLE
     Indication: BREAST CANCER FEMALE
     Dosage: 2.5 MG, QD
     Route: 065
     Dates: start: 201610, end: 201701
  4. GOSERELIN [Suspect]
     Active Substance: GOSERELIN
     Indication: BREAST CANCER FEMALE
     Dosage: 3.6 MG, QMO
     Route: 065
     Dates: start: 201609, end: 201705
  5. CALCIUM [Concomitant]
     Active Substance: CALCIUM
     Indication: PRODUCT USED FOR UNKNOWN INDICATION
     Route: 065
  6. TAMOXIFEN [Suspect]
     Active Substance: TAMOXIFEN
     Indication: BREAST CANCER FEMALE
     Dosage: UNK
     Route: 065
     Dates: start: 201701

REACTIONS (8)
  - Arthralgia [Unknown]
  - Drug tolerance decreased [Unknown]
  - Myalgia [Unknown]
  - Metastases to liver [Unknown]
  - Musculoskeletal stiffness [Unknown]
  - Rash [Unknown]
  - Skin hypertrophy [Unknown]
  - Constipation [Unknown]

NARRATIVE: CASE EVENT DATE: 201701
